FAERS Safety Report 8004636-0 (Version None)
Quarter: 2011Q4

REPORT INFORMATION
  Report Type: 
  Country: None (occurrence: None)
  Receive Date: 20111223
  Receipt Date: 20111213
  Transmission Date: 20120403
  Serious: Yes (Other)
  Sender: FDA-Public Use
  Company Number: TR-RANBAXY-2011RR-49972

PATIENT
  Age: 47 Year
  Sex: Male
  Weight: 83 kg

DRUGS (6)
  1. ISOFLURANE 0.5%/ NITROUS OXIDE 50%/ OXYGEN [Concomitant]
     Indication: GENERAL ANAESTHESIA
     Dosage: 50 %, UNK
     Route: 065
  2. MIVACRON [Suspect]
     Indication: ENDOTRACHEAL INTUBATION
     Dosage: 17 MG, SINGLE
     Route: 065
  3. SERTRALINE HYDROCHLORIDE [Suspect]
     Indication: MAJOR DEPRESSION
     Dosage: 100 MG/DAY
     Route: 065
  4. PROPOFOL [Concomitant]
     Indication: INDUCTION OF ANAESTHESIA
     Dosage: 200 MG, SINGLE
     Route: 065
  5. ISOFLURANE [Concomitant]
     Indication: GENERAL ANAESTHESIA
     Dosage: UNK
     Route: 055
  6. ISOFLURANE [Concomitant]
     Dosage: 0.5 %, UNK

REACTIONS (3)
  - BLOOD CHOLINESTERASE [None]
  - DRUG INTERACTION [None]
  - NEUROMUSCULAR BLOCKADE [None]
